FAERS Safety Report 25507727 (Version 2)
Quarter: 2025Q3

REPORT INFORMATION
  Report Type: Report from Study
  Country: CA (occurrence: CA)
  Receive Date: 20250703
  Receipt Date: 20250903
  Transmission Date: 20251021
  Serious: No
  Sender: ALEXION PHARMACEUTICALS
  Company Number: CA-AstraZeneca-CH-00871308AP

PATIENT
  Sex: Male

DRUGS (5)
  1. BENRALIZUMAB [Suspect]
     Active Substance: BENRALIZUMAB
     Indication: Asthma
  2. BENRALIZUMAB [Suspect]
     Active Substance: BENRALIZUMAB
  3. VENTOLIN [Concomitant]
     Active Substance: ALBUTEROL SULFATE
     Route: 065
  4. ATROVENT [Concomitant]
     Active Substance: IPRATROPIUM BROMIDE
     Route: 065
  5. SYMBICORT [Concomitant]
     Active Substance: BUDESONIDE\FORMOTEROL FUMARATE DIHYDRATE
     Route: 065

REACTIONS (2)
  - Product dose omission issue [Unknown]
  - Accidental exposure to product [Unknown]
